FAERS Safety Report 5694408-4 (Version None)
Quarter: 2008Q2

REPORT INFORMATION
  Report Type: 
  Country: None (occurrence: None)
  Receive Date: 20080403
  Receipt Date: 20080403
  Transmission Date: 20081010
  Serious: Yes (Death, Hospitalization)
  Sender: FDA-Public Use
  Company Number: None

PATIENT
  Sex: Male
  Weight: 54.5 kg

DRUGS (1)
  1. CISPLATIN [Suspect]
     Dosage: 160 MG
     Dates: end: 20080318

REACTIONS (5)
  - CEREBROVASCULAR ACCIDENT [None]
  - LEG AMPUTATION [None]
  - MYOCARDIAL INFARCTION [None]
  - PERIPHERAL ISCHAEMIA [None]
  - PUPILS UNEQUAL [None]
